FAERS Safety Report 13494139 (Version 1)
Quarter: 2017Q2

REPORT INFORMATION
  Report Type: Spontaneous
  Country: US (occurrence: US)
  Receive Date: 20170428
  Receipt Date: 20170428
  Transmission Date: 20170830
  Serious: No
  Sender: FDA-Public Use
  Company Number: US-ALKERMES INC.-ALK-2016-002844

PATIENT
  Age: 46 Year
  Sex: Male
  Weight: 88.44 kg

DRUGS (2)
  1. HEPATITIS B VACCINE [Concomitant]
     Active Substance: HEPATITIS B VIRUS VACCINE
     Indication: HEPATITIS B IMMUNISATION
     Dosage: UNK, ONE TIME DOSE
     Route: 065
     Dates: start: 20160921, end: 20160921
  2. VIVITROL [Suspect]
     Active Substance: NALTREXONE
     Indication: DRUG USE DISORDER
     Dosage: 680 MG, QMO
     Route: 030
     Dates: start: 20160921

REACTIONS (17)
  - Haemorrhoids [Unknown]
  - Euphoric mood [Recovered/Resolved]
  - Feeling abnormal [Recovered/Resolved]
  - Insomnia [Unknown]
  - Restlessness [Recovered/Resolved]
  - Paraesthesia oral [Recovered/Resolved]
  - Panic attack [Recovered/Resolved]
  - Urinary retention [Recovering/Resolving]
  - Dyspnoea [Recovered/Resolved]
  - Abdominal discomfort [Unknown]
  - Palpitations [Recovered/Resolved]
  - Electrolyte imbalance [Unknown]
  - Anxiety [Recovered/Resolved]
  - Haemorrhoidal haemorrhage [Unknown]
  - Abdominal distension [Unknown]
  - Proctalgia [Unknown]
  - Muscle twitching [Unknown]

NARRATIVE: CASE EVENT DATE: 20160921
